FAERS Safety Report 26192212 (Version 2)
Quarter: 2025Q4

REPORT INFORMATION
  Report Type: Spontaneous
  Country: US (occurrence: US)
  Receive Date: 20251223
  Receipt Date: 20251224
  Transmission Date: 20260118
  Serious: Yes (Hospitalization, Other)
  Sender: GILEAD
  Company Number: US-GILEAD-2025-0741291

PATIENT
  Age: 39 Year
  Sex: Male

DRUGS (1)
  1. YESCARTA [Suspect]
     Active Substance: AXICABTAGENE CILOLEUCEL
     Indication: Diffuse large B-cell lymphoma
     Dosage: UNK
     Route: 065

REACTIONS (5)
  - Cardiopulmonary failure [Unknown]
  - Cytokine release syndrome [Unknown]
  - Hypophysitis [Unknown]
  - Rhinovirus infection [Unknown]
  - Hypotension [Not Recovered/Not Resolved]
